FAERS Safety Report 13599995 (Version 1)
Quarter: 2017Q2

REPORT INFORMATION
  Report Type: Spontaneous
  Country: RU (occurrence: RU)
  Receive Date: 20170601
  Receipt Date: 20170601
  Transmission Date: 20170830
  Serious: Yes (Hospitalization, Other)
  Sender: FDA-Public Use
  Company Number: RU-ROCHE-1940280

PATIENT
  Age: 76 Year
  Sex: Male

DRUGS (12)
  1. MABTHERA [Suspect]
     Active Substance: RITUXIMAB
     Dosage: 200/500 MG, 1 COURSE(R-CLBSCHEME(200 MG ONE DAY/500MG THE NEXT
     Route: 042
     Dates: start: 20161125, end: 20161222
  2. MABTHERA [Suspect]
     Active Substance: RITUXIMAB
     Dosage: 2 COURSES ON SCHEME R-COP (LIGHT)
     Route: 042
     Dates: start: 201702, end: 201704
  3. VINCRISTINE [Concomitant]
     Active Substance: VINCRISTINE
     Indication: CHRONIC LYMPHOCYTIC LEUKAEMIA
     Dosage: 2MG PER DAY
     Route: 042
     Dates: start: 20160429
  4. ALLOPURINOL. [Concomitant]
     Active Substance: ALLOPURINOL
     Route: 065
  5. CYCLOPHOSPHAMIDE. [Concomitant]
     Active Substance: CYCLOPHOSPHAMIDE
     Indication: CHRONIC LYMPHOCYTIC LEUKAEMIA
     Dosage: 200 MG PER 1 DAY
     Route: 065
     Dates: start: 20160429, end: 20160502
  6. OMEPRAZOLUM [Concomitant]
  7. MABTHERA [Suspect]
     Active Substance: RITUXIMAB
     Dosage: 1 COURSE ON SCHEME R-CLB
     Route: 042
     Dates: start: 20161223, end: 201612
  8. MABTHERA [Suspect]
     Active Substance: RITUXIMAB
     Indication: CHRONIC LYMPHOCYTIC LEUKAEMIA
     Dosage: 1 COURSE ON SCHEME R-COP
     Route: 041
     Dates: start: 20160429, end: 201604
  9. EMESET [Concomitant]
     Active Substance: ONDANSETRON HYDROCHLORIDE
  10. SODA BICARBONATE [Concomitant]
  11. CHLORAMBUCIL [Concomitant]
     Active Substance: CHLORAMBUCIL
     Dosage: 10 MG PER DAY FOR 6 DAYS
     Route: 048
     Dates: start: 20161125
  12. PREDNISOLONE. [Concomitant]
     Active Substance: PREDNISOLONE
     Indication: CHRONIC LYMPHOCYTIC LEUKAEMIA
     Dosage: 60 MG PER DAY FOR 5 DAYS
     Route: 048
     Dates: start: 20160429, end: 20160502

REACTIONS (10)
  - Oedema peripheral [Unknown]
  - Blood pressure increased [Recovered/Resolved]
  - Angina pectoris [Unknown]
  - Pneumonia [Recovered/Resolved]
  - Dyspnoea at rest [Unknown]
  - Anaemia [Recovered/Resolved]
  - Cholecystitis chronic [Unknown]
  - Lymphadenopathy [Recovered/Resolved]
  - Thrombocytopenia [Recovered/Resolved]
  - Lung disorder [Recovered/Resolved]

NARRATIVE: CASE EVENT DATE: 20160505
